FAERS Safety Report 24004642 (Version 1)
Quarter: 2024Q2

REPORT INFORMATION
  Report Type: Spontaneous
  Country: CO (occurrence: CO)
  Receive Date: 20240624
  Receipt Date: 20240624
  Transmission Date: 20240716
  Serious: Yes (Hospitalization, Other)
  Sender: FDA-Public Use
  Company Number: CO-SA-SAC20240530000697

PATIENT
  Age: 60 Year
  Sex: Female

DRUGS (1)
  1. PRALUENT [Suspect]
     Active Substance: ALIROCUMAB
     Indication: Type IIa hyperlipidaemia
     Dosage: 75 MG/ML, QOW
     Route: 058
     Dates: end: 20240209

REACTIONS (2)
  - Hospitalisation [Unknown]
  - Cardiac operation [Unknown]

NARRATIVE: CASE EVENT DATE: 20240501
